FAERS Safety Report 14395484 (Version 1)
Quarter: 2018Q1

REPORT INFORMATION
  Report Type: Spontaneous
  Country: US (occurrence: US)
  Receive Date: 20180116
  Receipt Date: 20180116
  Transmission Date: 20180509
  Serious: No
  Sender: FDA-Public Use
  Company Number: US-ALLERGAN-1705957US

PATIENT
  Age: 67 Year
  Sex: Female

DRUGS (1)
  1. BOTOX COSMETIC [Suspect]
     Active Substance: ONABOTULINUMTOXINA
     Indication: SKIN WRINKLING
     Dosage: UNK, SINGLE
     Route: 030

REACTIONS (6)
  - Skin tightness [Recovered/Resolved]
  - Feeling cold [Recovered/Resolved]
  - Stress [Recovered/Resolved]
  - Drug hypersensitivity [Recovered/Resolved]
  - Emotional distress [Recovered/Resolved]
  - Wrong technique in product usage process [Unknown]
